FAERS Safety Report 23088957 (Version 3)
Quarter: 2023Q4

REPORT INFORMATION
  Report Type: Spontaneous
  Country: US (occurrence: US)
  Receive Date: 20231020
  Receipt Date: 20231124
  Transmission Date: 20240110
  Serious: No
  Sender: FDA-Public Use
  Company Number: US-ALEMBIC PHARMACUETICALS LIMITED-2023SCAL000826

PATIENT

DRUGS (1)
  1. BIMATOPROST [Suspect]
     Active Substance: BIMATOPROST
     Indication: Growth of eyelashes
     Dosage: APPLIED DAILY TO UPPER LASHES, ONE DROP PER LID WITH YOUR BRUSHES
     Route: 061
     Dates: start: 20230828, end: 20231004

REACTIONS (1)
  - Drug ineffective [Unknown]
